FAERS Safety Report 12131461 (Version 1)
Quarter: 2016Q1

REPORT INFORMATION
  Report Type: Spontaneous
  Country: BR (occurrence: BR)
  Receive Date: 20160301
  Receipt Date: 20160301
  Transmission Date: 20160526
  Serious: Yes (Other)
  Sender: FDA-Public Use
  Company Number: BR-JNJFOC-20160217273

PATIENT
  Age: 12 Year
  Sex: Male
  Weight: 40 kg

DRUGS (3)
  1. RISPERDAL [Suspect]
     Active Substance: RISPERIDONE
     Indication: AUTISM
     Dosage: 1.25 ML IN THE MORNING AND 1 ML AT NIGHT
     Route: 048
  2. RISPERDAL [Suspect]
     Active Substance: RISPERIDONE
     Indication: AUTISM
     Dosage: DOSE REDUCED
     Route: 048
  3. RISPERDAL [Suspect]
     Active Substance: RISPERIDONE
     Indication: AUTISM
     Route: 048

REACTIONS (10)
  - Intentional product misuse [Unknown]
  - Muscle contracture [Unknown]
  - Off label use [Unknown]
  - Munchausen^s syndrome [Unknown]
  - Product use issue [Unknown]
  - Headache [Unknown]
  - Dyspnoea [Unknown]
  - Somnolence [Unknown]
  - Sedation [Unknown]
  - Swelling face [Unknown]
